FAERS Safety Report 4922183-7 (Version None)
Quarter: 2006Q1

REPORT INFORMATION
  Report Type: 
  Country: None (occurrence: None)
  Receive Date: 20060224
  Receipt Date: 20050824
  Transmission Date: 20060701
  Serious: Yes (Hospitalization, Disabling, Other)
  Sender: FDA-Public Use
  Company Number: US-MERCK-0508USA04064

PATIENT
  Age: 56 Year
  Sex: Male
  Weight: 77 kg

DRUGS (3)
  1. VIOXX [Suspect]
     Indication: ARTHRITIS
     Route: 048
     Dates: start: 20010826, end: 20040930
  2. VIOXX [Suspect]
     Route: 048
     Dates: start: 20010826, end: 20040930
  3. ACETAMINOPHEN [Concomitant]
     Route: 065

REACTIONS (24)
  - ACUTE MYOCARDIAL INFARCTION [None]
  - ARRHYTHMIA [None]
  - ARTHRALGIA [None]
  - BENIGN PROSTATIC HYPERPLASIA [None]
  - CARPAL TUNNEL DECOMPRESSION [None]
  - CHEST PAIN [None]
  - CHOLECYSTECTOMY [None]
  - CORONARY ARTERY DISEASE [None]
  - CORONARY ARTERY STENOSIS [None]
  - DYSPNOEA [None]
  - ELECTROCARDIOGRAM POOR R-WAVE PROGRESSION [None]
  - ELECTROCARDIOGRAM T WAVE INVERSION [None]
  - FIBROMYALGIA [None]
  - GASTROOESOPHAGEAL REFLUX DISEASE [None]
  - GRAFT THROMBOSIS [None]
  - HYPERTENSION [None]
  - INSOMNIA [None]
  - INTERVERTEBRAL DISC PROTRUSION [None]
  - MITRAL VALVE INCOMPETENCE [None]
  - MYOCARDIAL INFARCTION [None]
  - RHINITIS PERENNIAL [None]
  - SLEEP APNOEA SYNDROME [None]
  - TRICUSPID VALVE INCOMPETENCE [None]
  - TRIGGER FINGER [None]
